FAERS Safety Report 6137980-2 (Version None)
Quarter: 2009Q1

REPORT INFORMATION
  Report Type: 
  Country: None (occurrence: None)
  Receive Date: 20090327
  Receipt Date: 20090327
  Transmission Date: 20090719
  Serious: No
  Sender: FDA-Public Use
  Company Number: None

PATIENT
  Sex: Female
  Weight: 76.6579 kg

DRUGS (1)
  1. MUCINEX DM [Suspect]
     Indication: NASOPHARYNGITIS
     Dosage: 1 TAB BID PO
     Route: 048
     Dates: start: 20090222

REACTIONS (3)
  - DIZZINESS [None]
  - INAPPROPRIATE AFFECT [None]
  - SOMNOLENCE [None]
